FAERS Safety Report 6189907-5 (Version None)
Quarter: 2009Q2

REPORT INFORMATION
  Report Type: 
  Country: None (occurrence: None)
  Receive Date: 20090514
  Receipt Date: 20090505
  Transmission Date: 20091009
  Serious: Yes (Other)
  Sender: FDA-Public Use
  Company Number: US-AMGEN-KDL328506

PATIENT
  Sex: Male
  Weight: 93.1 kg

DRUGS (3)
  1. ENBREL [Suspect]
     Indication: PSORIATIC ARTHROPATHY
     Route: 058
     Dates: start: 20061219
  2. ASPIRIN [Concomitant]
  3. BENICAR [Concomitant]

REACTIONS (6)
  - DEAFNESS [None]
  - DENTAL DISCOMFORT [None]
  - EAR CONGESTION [None]
  - TINNITUS [None]
  - VERTIGO [None]
  - VIRAL INFECTION [None]
